FAERS Safety Report 8183627-3 (Version None)
Quarter: 2012Q1

REPORT INFORMATION
  Report Type: 
  Country: None (occurrence: None)
  Receive Date: 20120130
  Receipt Date: 20110816
  Transmission Date: 20120608
  Serious: Yes (Hospitalization)
  Sender: FDA-Public Use
  Company Number: 039348

PATIENT
  Age: 32 Year
  Sex: Male

DRUGS (3)
  1. KEPPRA [Suspect]
     Dosage: (2000 MG BID ORAL)
     Route: 048
  2. LACOSAMIDE [Concomitant]
  3. FENTANYL [Concomitant]

REACTIONS (1)
  - PANCREATITIS [None]
